FAERS Safety Report 24632744 (Version 1)
Quarter: 2024Q4

REPORT INFORMATION
  Report Type: Spontaneous
  Country: US (occurrence: US)
  Receive Date: 20241118
  Receipt Date: 20241118
  Transmission Date: 20250114
  Serious: No
  Sender: PERRIGO
  Company Number: US-PERRIGO-24US005374

PATIENT
  Age: 42 Year
  Sex: Female
  Weight: 61.224 kg

DRUGS (2)
  1. OPILL [Suspect]
     Active Substance: NORGESTREL
     Indication: Contraception
     Dosage: 0.075 MG, QD
     Route: 048
     Dates: start: 20240512, end: 20240519
  2. OPILL [Suspect]
     Active Substance: NORGESTREL
     Dosage: 0.075 MG, QD
     Route: 048
     Dates: start: 20240528

REACTIONS (2)
  - Vaginal haemorrhage [Recovering/Resolving]
  - Inappropriate schedule of product administration [Unknown]

NARRATIVE: CASE EVENT DATE: 20240520
